FAERS Safety Report 22950615 (Version 6)
Quarter: 2023Q4

REPORT INFORMATION
  Report Type: Spontaneous
  Country: CN (occurrence: CN)
  Receive Date: 20230915
  Receipt Date: 20231108
  Transmission Date: 20240109
  Serious: Yes (Death, Other)
  Sender: FDA-Public Use
  Company Number: CN-BoehringerIngelheim-2023-BI-261356

PATIENT
  Age: 57 Year
  Sex: Male
  Weight: 55 kg

DRUGS (10)
  1. GILOTRIF [Suspect]
     Active Substance: AFATINIB
     Indication: Lung neoplasm malignant
     Route: 048
     Dates: start: 20230308, end: 20230620
  2. GILOTRIF [Suspect]
     Active Substance: AFATINIB
     Indication: Non-small cell lung cancer stage IV
  3. GILOTRIF [Suspect]
     Active Substance: AFATINIB
     Indication: EGFR gene mutation
  4. CEFOPERAZONE SODIUM\SULBACTAM SODIUM [Concomitant]
     Active Substance: CEFOPERAZONE SODIUM\SULBACTAM SODIUM
     Indication: Stenotrophomonas infection
     Dates: start: 20230628, end: 20230629
  5. ERTAPENEM [Concomitant]
     Active Substance: ERTAPENEM
     Indication: Stenotrophomonas infection
     Dates: start: 20230629, end: 20230706
  6. SULFAMETHOXAZOLE [Concomitant]
     Active Substance: SULFAMETHOXAZOLE
     Indication: Stenotrophomonas infection
     Dates: start: 20230702, end: 20230706
  7. ALBUMIN HUMAN [Concomitant]
     Active Substance: ALBUMIN HUMAN
     Indication: Hypoalbuminaemia
     Dates: start: 20230629, end: 202307
  8. Leukofiltration erythrocyte [Concomitant]
     Indication: Anaemia
     Dates: start: 20230705, end: 20230705
  9. OXYCONTIN [Concomitant]
     Active Substance: OXYCODONE HYDROCHLORIDE
     Indication: Back pain
     Dosage: 3 TABLETS/TIME
     Route: 048
     Dates: start: 20230610, end: 202307
  10. OXYCONTIN [Concomitant]
     Active Substance: OXYCODONE HYDROCHLORIDE
     Dosage: 2 TABLETS/TIME
     Route: 048
     Dates: start: 20230511, end: 20230609

REACTIONS (6)
  - Malignant neoplasm progression [Fatal]
  - Peritonitis [Unknown]
  - Immunodeficiency [Unknown]
  - Off label use [Unknown]
  - Melaena [Recovering/Resolving]
  - Liver injury [Unknown]

NARRATIVE: CASE EVENT DATE: 20230717
